FAERS Safety Report 12573482 (Version 1)
Quarter: 2016Q3

REPORT INFORMATION
  Report Type: Spontaneous
  Country: US (occurrence: US)
  Receive Date: 20160720
  Receipt Date: 20160720
  Transmission Date: 20161109
  Serious: No
  Sender: FDA-Public Use
  Company Number: US-PFIZER INC-2016319143

PATIENT
  Age: 50 Year
  Sex: Female
  Weight: 85 kg

DRUGS (12)
  1. CLARITIN-D 24 HOUR [Concomitant]
     Active Substance: LORATADINE\PSEUDOEPHEDRINE SULFATE
     Dosage: 1 DF, DAILY [LORATADINE 10 MG, PSEUDOEPHEDRINE SULFATE 240 MG]
     Route: 048
  2. ZIPSOR [Concomitant]
     Active Substance: DICLOFENAC POTASSIUM
     Dosage: 25 MG, UNK [AS DIRECTED]
     Route: 048
     Dates: start: 20121115
  3. PREVPAC [Concomitant]
     Active Substance: AMOXICILLIN\CLARITHROMYCIN\LANSOPRAZOLE
     Dosage: UNK [1 PACK PO AS DIRECTED] [AMOXICILLIN TRIHYDRATE 30, CLARITHROMYCIN 500, LANSOPRAZOLE 500]
     Route: 048
  4. DETROL LA [Concomitant]
     Active Substance: TOLTERODINE TARTRATE
     Dosage: 4 MG, DAILY
     Route: 048
     Dates: start: 20130215
  5. ACETAMINOPHEN\HYDROCODONE BITARTRATE [Concomitant]
     Active Substance: ACETAMINOPHEN\HYDROCODONE BITARTRATE
     Indication: PAIN
     Dosage: 1 DF, AS NEEDED [HYDROCODONE BITARTRATE 10MG, PARACETAMOL 325 MG, Q4H]
     Route: 048
  6. PRILOSEC [Concomitant]
     Active Substance: OMEPRAZOLE MAGNESIUM
     Dosage: 20 MG, DAILY
     Route: 048
  7. TAMOXIFEN CITRATE. [Concomitant]
     Active Substance: TAMOXIFEN CITRATE
     Dosage: 20 MG, DAILY
     Route: 048
     Dates: start: 20120823
  8. AROMASIN [Suspect]
     Active Substance: EXEMESTANE
     Dosage: 25 MG, DAILY
     Route: 048
     Dates: start: 20121115
  9. DIFLUCAN [Concomitant]
     Active Substance: FLUCONAZOLE
     Dosage: 150 MG, DAILY
     Route: 048
     Dates: start: 20121115
  10. NORVASC [Concomitant]
     Active Substance: AMLODIPINE BESYLATE
     Dosage: 5 MG, 2X/DAY
     Route: 048
     Dates: start: 20120823
  11. POTASSIUM CHLORIDE. [Concomitant]
     Active Substance: POTASSIUM CHLORIDE
     Dosage: 10 MEQ, 2X/DAY
     Route: 048
     Dates: start: 20131118
  12. POTASSIUM CHLORIDE. [Concomitant]
     Active Substance: POTASSIUM CHLORIDE
     Dosage: 20 MEQ, 2X/DAY
     Route: 048
     Dates: start: 20131118

REACTIONS (3)
  - Back pain [Unknown]
  - Arthralgia [Unknown]
  - Lymphoedema [Unknown]
